FAERS Safety Report 7087106-6 (Version None)
Quarter: 2010Q4

REPORT INFORMATION
  Report Type: 
  Country: None (occurrence: None)
  Receive Date: 20101106
  Receipt Date: 20101027
  Transmission Date: 20110411
  Serious: No
  Sender: FDA-Public Use
  Company Number: US-WYE-H18404310

PATIENT
  Sex: Female

DRUGS (1)
  1. ADVIL PM [Suspect]
     Route: 048
     Dates: start: 20101026, end: 20101026

REACTIONS (2)
  - NASAL CONGESTION [None]
  - NASAL DRYNESS [None]
